FAERS Safety Report 9405505 (Version 1)
Quarter: 2013Q3

REPORT INFORMATION
  Report Type: Spontaneous
  Country: US (occurrence: US)
  Receive Date: 20130717
  Receipt Date: 20130717
  Transmission Date: 20140515
  Serious: Yes (Other)
  Sender: FDA-Public Use
  Company Number: US-TEVA-418648USA

PATIENT
  Sex: 0

DRUGS (1)
  1. GABITRIL [Suspect]
     Indication: CONVULSION

REACTIONS (36)
  - Nephrolithiasis [Unknown]
  - Feeling abnormal [Unknown]
  - Aphasia [Unknown]
  - Sedation [Unknown]
  - Psychomotor retardation [Unknown]
  - Fatigue [Unknown]
  - Dizziness [Unknown]
  - Headache [Unknown]
  - Ataxia [Unknown]
  - Diplopia [Unknown]
  - Nausea [Unknown]
  - Vision blurred [Unknown]
  - Insomnia [Unknown]
  - Rash [Unknown]
  - Weight fluctuation [Unknown]
  - Anxiety [Unknown]
  - Depression [Unknown]
  - Abnormal behaviour [Unknown]
  - Tremor [Unknown]
  - Irritability [Unknown]
  - Confusional state [Unknown]
  - Malaise [Unknown]
  - Dysphemia [Unknown]
  - Urinary incontinence [Unknown]
  - Affect lability [Unknown]
  - Agitation [Unknown]
  - Personality change [Unknown]
  - Mood altered [Unknown]
  - Dysarthria [Unknown]
  - Memory impairment [Unknown]
  - Drooling [Unknown]
  - Paraesthesia [Unknown]
  - Tinnitus [Unknown]
  - Alopecia [Unknown]
  - Palpitations [Unknown]
  - Appetite disorder [Unknown]
